FAERS Safety Report 7865309-8 (Version None)
Quarter: 2011Q4

REPORT INFORMATION
  Report Type: 
  Country: None (occurrence: None)
  Receive Date: 20111028
  Receipt Date: 20111020
  Transmission Date: 20120403
  Serious: Yes (Other)
  Sender: FDA-Public Use
  Company Number: GB-ABBOTT-11P-167-0861639-00

PATIENT
  Age: 39 Year
  Sex: Male

DRUGS (4)
  1. REYATAZ [Suspect]
     Indication: PRODUCT USED FOR UNKNOWN INDICATION
     Dates: start: 20090101
  2. TRUVADA [Suspect]
     Indication: HIV INFECTION
  3. RITONAVIR [Suspect]
     Indication: PRODUCT USED FOR UNKNOWN INDICATION
  4. PROTON PUMP INHIBITOR (NOT SPECIFIED) [Concomitant]
     Indication: PRODUCT USED FOR UNKNOWN INDICATION

REACTIONS (2)
  - VIRAL LOAD INCREASED [None]
  - GLOMERULAR FILTRATION RATE DECREASED [None]
